FAERS Safety Report 21735703 (Version 2)
Quarter: 2023Q1

REPORT INFORMATION
  Report Type: Spontaneous
  Country: US (occurrence: US)
  Receive Date: 20221215
  Receipt Date: 20230105
  Transmission Date: 20230418
  Serious: Yes (Hospitalization, Other)
  Sender: FDA-Public Use
  Company Number: US-TEVA-2022-US-2834592

PATIENT
  Age: 20 Year
  Sex: Male

DRUGS (11)
  1. ETOPOSIDE [Suspect]
     Active Substance: ETOPOSIDE
     Indication: Primary mediastinal large B-cell lymphoma recurrent
     Dosage: 6 CYCLE
     Route: 065
  2. ETOPOSIDE [Suspect]
     Active Substance: ETOPOSIDE
     Dosage: 2 CYCLES
     Route: 065
  3. PREDNISONE [Suspect]
     Active Substance: PREDNISONE
     Indication: Primary mediastinal large B-cell lymphoma recurrent
     Dosage: 6 CYCLE
     Route: 065
  4. IFOSFAMIDE [Suspect]
     Active Substance: IFOSFAMIDE
     Indication: Primary mediastinal large B-cell lymphoma recurrent
     Dosage: TWO CYCLES
     Route: 065
  5. MESNA [Suspect]
     Active Substance: MESNA
     Indication: Primary mediastinal large B-cell lymphoma recurrent
     Dosage: TWO CYCLES
     Route: 065
  6. HYDROXYDOXORUBICIN [Suspect]
     Active Substance: HYDROXYDOXORUBICIN
     Indication: Primary mediastinal large B-cell lymphoma recurrent
     Dosage: 6 CYCLE
     Route: 065
  7. CARBOPLATIN [Suspect]
     Active Substance: CARBOPLATIN
     Indication: Primary mediastinal large B-cell lymphoma recurrent
     Dosage: TWO CYCLES
     Route: 065
  8. ONCOVIN [Suspect]
     Active Substance: VINCRISTINE SULFATE
     Indication: Primary mediastinal large B-cell lymphoma recurrent
     Dosage: 6 CYCLE
     Route: 065
  9. CYCLOPHOSPHAMIDE [Suspect]
     Active Substance: CYCLOPHOSPHAMIDE
     Indication: Primary mediastinal large B-cell lymphoma recurrent
     Dosage: 6 CYCLE
     Route: 065
  10. BRENTUXIMAB [Suspect]
     Active Substance: BRENTUXIMAB
     Indication: Primary mediastinal large B-cell lymphoma recurrent
     Dosage: TWO INFUSIONS , ADDITIONAL INFO: ROUTE: {INFUSION}; ACTION TAKEN: THERAPY COMPLETED
     Route: 050
  11. RITUXIMAB [Suspect]
     Active Substance: RITUXIMAB
     Indication: Primary mediastinal large B-cell lymphoma recurrent
     Dosage: 6 CYCLE , ADDITIONAL INFO: ACTION TAKEN: THERAPY COMPLETED
     Route: 065

REACTIONS (5)
  - Drug ineffective [Unknown]
  - Neuropathy peripheral [Recovering/Resolving]
  - Pulmonary hypertension [Recovered/Resolved]
  - Pulmonary veno-occlusive disease [Recovered/Resolved]
  - Right ventricular failure [Recovered/Resolved]
